FAERS Safety Report 16087687 (Version 1)
Quarter: 2019Q1

REPORT INFORMATION
  Report Type: Spontaneous
  Country: ES (occurrence: ES)
  Receive Date: 20190319
  Receipt Date: 20190319
  Transmission Date: 20190418
  Serious: Yes (Hospitalization, Other)
  Sender: FDA-Public Use
  Company Number: ES-AUROBINDO-AUR-APL-2019-014003

PATIENT

DRUGS (4)
  1. ENOXAPARIN SODIUM. [Suspect]
     Active Substance: ENOXAPARIN SODIUM
     Indication: PRODUCT USED FOR UNKNOWN INDICATION
     Dosage: 40 MILLIGRAM
     Route: 058
     Dates: start: 20190210, end: 20190222
  2. ETHAMBUTOL [Suspect]
     Active Substance: ETHAMBUTOL HYDROCHLORIDE
     Indication: PULMONARY TUBERCULOSIS
     Dosage: 800 MILLIGRAM
     Route: 048
     Dates: start: 20190219, end: 20190226
  3. LEVOFLOXACIN. [Suspect]
     Active Substance: LEVOFLOXACIN
     Indication: PRODUCT USED FOR UNKNOWN INDICATION
     Dosage: UNK
     Route: 065
     Dates: start: 20190219, end: 20190226
  4. ISONIAZID;PYRIDOXINE [Suspect]
     Active Substance: ISONIAZID\PYRIDOXINE
     Indication: PULMONARY TUBERCULOSIS
     Dosage: 300MG + 50 MG CADA 24H
     Route: 048
     Dates: start: 20190219, end: 20190222

REACTIONS (4)
  - Thrombocytopenia [Unknown]
  - Melaena [Unknown]
  - Anaemia [Unknown]
  - Gingival bleeding [Unknown]

NARRATIVE: CASE EVENT DATE: 20190222
